FAERS Safety Report 5797115-2 (Version None)
Quarter: 2008Q2

REPORT INFORMATION
  Report Type: 
  Country: None (occurrence: None)
  Receive Date: 20080618
  Receipt Date: 20071119
  Transmission Date: 20081010
  Serious: Yes (Other)
  Sender: FDA-Public Use
  Company Number: 200717435US

PATIENT
  Age: 71 Year
  Sex: Male
  Weight: 75 kg

DRUGS (15)
  1. LANTUS [Suspect]
     Dosage: 14 U HS INJ
     Route: 042
     Dates: start: 20050401
  2. NOVOLOG [Suspect]
  3. CICLOSPORIN (SANDIMMUNE) [Concomitant]
  4. DOCUSATE SODIUM (COLACE) [Concomitant]
  5. ASPIRIN [Concomitant]
  6. AZATHIOPRINE (IMURAN /00001501/) [Concomitant]
  7. METOPROLOL TARTRAET (LOPRESSOR) [Concomitant]
  8. RANITIDINE HYDROCHLORIDE (ZANTAC) [Concomitant]
  9. LIPITOR [Concomitant]
  10. AMITRIPTYLINE HYDROCHLORIDE (ELAVIL /00002202/) [Concomitant]
  11. HYDROCHLOROTHIAZIDE [Concomitant]
  12. LODIPINE (PLENDIL) [Concomitant]
  13. CIUM [Concomitant]
  14. FOSAMAX [Concomitant]
  15. ERGOCALCIFEROL (VIT D) [Concomitant]

REACTIONS (2)
  - HYPOGLYCAEMIC UNCONSCIOUSNESS [None]
  - WRONG DRUG ADMINISTERED [None]
